FAERS Safety Report 5752860-X (Version None)
Quarter: 2008Q2

REPORT INFORMATION
  Report Type: 
  Country: None (occurrence: None)
  Receive Date: 20080529
  Receipt Date: 20080528
  Transmission Date: 20081010
  Serious: Yes (Hospitalization)
  Sender: FDA-Public Use
  Company Number: ES-PFIZER INC-2008045033

PATIENT
  Age: 54 Year
  Sex: Male

DRUGS (6)
  1. ZARATOR [Suspect]
     Indication: HYPERCHOLESTEROLAEMIA
     Route: 048
     Dates: start: 20050503, end: 20080307
  2. HALOPERIDOL [Concomitant]
     Route: 048
  3. DIAZEPAM [Concomitant]
     Route: 048
  4. BIPERIDEN HYDROCHLORIDE TAB [Concomitant]
     Route: 048
  5. LEVOMEPROMAZINE [Concomitant]
     Route: 048
  6. OXCARBAZEPINE [Concomitant]
     Route: 048

REACTIONS (1)
  - HYPERKALAEMIA [None]
